FAERS Safety Report 15376181 (Version 10)
Quarter: 2020Q2

REPORT INFORMATION
  Report Type: Report from Study
  Country: BE (occurrence: BE)
  Receive Date: 20180912
  Receipt Date: 20200609
  Transmission Date: 20200713
  Serious: Yes (Hospitalization)
  Sender: FDA-Public Use
  Company Number: BE-EISAI MEDICAL RESEARCH-EC-2018-045060

PATIENT
  Age: 73 Year
  Sex: Male
  Weight: 79.2 kg

DRUGS (11)
  1. LENVATINIB [Suspect]
     Active Substance: LENVATINIB
     Indication: RENAL CELL CARCINOMA
     Route: 048
     Dates: start: 20180822, end: 20180909
  2. LENVATINIB [Suspect]
     Active Substance: LENVATINIB
     Route: 048
     Dates: start: 20191229, end: 20200310
  3. MIRTAZAPINE. [Concomitant]
     Active Substance: MIRTAZAPINE
  4. LENVATINIB [Suspect]
     Active Substance: LENVATINIB
     Route: 048
     Dates: start: 201809, end: 20191226
  5. MOXON [Concomitant]
     Active Substance: MOXONIDINE
  6. AMLOR [Concomitant]
     Active Substance: AMLODIPINE BESYLATE
  7. L-THYROXINE [Concomitant]
     Active Substance: LEVOTHYROXINE
  8. PEMBROLIZUMAB. [Suspect]
     Active Substance: PEMBROLIZUMAB
     Indication: RENAL CELL CARCINOMA
     Route: 041
     Dates: start: 20180822, end: 20200218
  9. CORUNO RETARD [Concomitant]
  10. SIMVASTATINE [Concomitant]
     Active Substance: SIMVASTATIN
  11. CLOBETASOL OINTMENT [Concomitant]
     Active Substance: CLOBETASOL

REACTIONS (3)
  - Hypertension [Recovered/Resolved]
  - Weight decreased [Recovering/Resolving]
  - Diarrhoea [Recovered/Resolved]

NARRATIVE: CASE EVENT DATE: 20180909
